FAERS Safety Report 25036792 (Version 1)
Quarter: 2025Q1

REPORT INFORMATION
  Report Type: Report from Study
  Country: CA (occurrence: CA)
  Receive Date: 20250304
  Receipt Date: 20250304
  Transmission Date: 20250409
  Serious: Yes (Hospitalization, Other)
  Sender: TAKEDA
  Company Number: CA-TAKEDA-2025TUS020823

PATIENT
  Sex: Female

DRUGS (11)
  1. VEDOLIZUMAB [Suspect]
     Active Substance: VEDOLIZUMAB
     Indication: Crohn^s disease
  2. AZATHIOPRINE [Concomitant]
     Active Substance: AZATHIOPRINE
  3. CRESTOR [Concomitant]
     Active Substance: ROSUVASTATIN CALCIUM
  4. ELIQUIS [Concomitant]
     Active Substance: APIXABAN
  5. METFORMIN [Concomitant]
     Active Substance: METFORMIN HYDROCHLORIDE
  6. VITAMIN D [Concomitant]
     Active Substance: VITAMIN D NOS
  7. BISOPROLOL [Concomitant]
     Active Substance: BISOPROLOL
  8. TELMISARTAN [Concomitant]
     Active Substance: TELMISARTAN
  9. INSULIN NOS [Concomitant]
     Active Substance: INSULIN NOS
  10. ACETAMINOPHEN\TRAMADOL [Concomitant]
     Active Substance: ACETAMINOPHEN\TRAMADOL
  11. ATIVAN [Concomitant]
     Active Substance: LORAZEPAM

REACTIONS (5)
  - Fall [Unknown]
  - Multiple fractures [Unknown]
  - Wrist fracture [Unknown]
  - Rib fracture [Unknown]
  - Eye injury [Unknown]
